FAERS Safety Report 6893136-7 (Version None)
Quarter: 2010Q3

REPORT INFORMATION
  Report Type: 
  Country: None (occurrence: None)
  Receive Date: 20100731
  Receipt Date: 20090528
  Transmission Date: 20110219
  Serious: No
  Sender: FDA-Public Use
  Company Number: US-PFIZER INC-2009207430

PATIENT
  Sex: Male

DRUGS (4)
  1. NORVASC [Suspect]
  2. PLAVIX [Suspect]
     Dosage: 75 MG, UNK
     Route: 048
  3. BENICAR [Suspect]
  4. CRESTOR [Suspect]

REACTIONS (4)
  - ABDOMINAL DISCOMFORT [None]
  - DIARRHOEA [None]
  - FLUSHING [None]
  - NAUSEA [None]
